FAERS Safety Report 18350345 (Version 4)
Quarter: 2020Q4

REPORT INFORMATION
  Report Type: Spontaneous
  Country: US (occurrence: US)
  Receive Date: 20201006
  Receipt Date: 20201210
  Transmission Date: 20210114
  Serious: No
  Sender: FDA-Public Use
  Company Number: US-GLAXOSMITHKLINE-US2020AMR198967

PATIENT
  Sex: Female

DRUGS (4)
  1. ZEJULA [Suspect]
     Active Substance: NIRAPARIB
     Dosage: 200 MG, QD
     Route: 048
  2. MIRTAZAPINE. [Suspect]
     Active Substance: MIRTAZAPINE
     Indication: FEELING ABNORMAL
     Dosage: 7.5 MG, QD
  3. ZEJULA [Suspect]
     Active Substance: NIRAPARIB
     Dosage: 200 MG, QD
  4. ZEJULA [Suspect]
     Active Substance: NIRAPARIB
     Indication: RETROPERITONEAL CANCER
     Dosage: 200 MG, QD
     Route: 048
     Dates: start: 20200923

REACTIONS (12)
  - Constipation [Recovered/Resolved]
  - Hypertension [Recovered/Resolved]
  - Tremor [Unknown]
  - Feeling abnormal [Unknown]
  - Nausea [Not Recovered/Not Resolved]
  - Joint swelling [Recovering/Resolving]
  - Fatigue [Unknown]
  - Dry mouth [Unknown]
  - Dry skin [Unknown]
  - Product dose omission issue [Unknown]
  - Insomnia [Recovered/Resolved]
  - Dizziness [Unknown]
